FAERS Safety Report 4381961-6 (Version None)
Quarter: 2004Q2

REPORT INFORMATION
  Report Type: 
  Country: None (occurrence: None)
  Receive Date: 20040621
  Receipt Date: 20040218
  Transmission Date: 20050107
  Serious: Yes (Other)
  Sender: FDA-Public Use
  Company Number: A-US2004-05214

PATIENT
  Age: 14 Year
  Sex: Female

DRUGS (6)
  1. ZAVESCA [Suspect]
     Indication: NIEMANN-PICK DISEASE
     Dosage: 50 MG, BID, ORAL
     Route: 048
     Dates: start: 20040205, end: 20040301
  2. LOPERAMIDE HCL [Concomitant]
  3. LAMICTAL [Concomitant]
  4. DEPAKOTE [Concomitant]
  5. ZOLOFT [Concomitant]
  6. BUSPAR [Concomitant]

REACTIONS (2)
  - DIARRHOEA [None]
  - WEIGHT DECREASED [None]
